FAERS Safety Report 7393600-0 (Version None)
Quarter: 2011Q1

REPORT INFORMATION
  Report Type: 
  Country: None (occurrence: None)
  Receive Date: 20110331
  Receipt Date: 20110331
  Transmission Date: 20110831
  Serious: Yes (Disabling)
  Sender: FDA-Public Use
  Company Number: None

PATIENT
  Age: 63 Year
  Sex: Female
  Weight: 134.2647 kg

DRUGS (3)
  1. WARFARIN SODIUM [Suspect]
     Indication: PULMONARY EMBOLISM
     Dosage: 2.5-5.0MG WITH PT/INR DAILY ORAL
     Route: 048
     Dates: start: 20100130
  2. WARFARIN SODIUM [Suspect]
     Indication: DEEP VEIN THROMBOSIS
     Dosage: 2.5-5.0MG WITH PT/INR DAILY ORAL
     Route: 048
     Dates: start: 20100130
  3. TAMOXIFEN CITRATE [Suspect]

REACTIONS (4)
  - BLOOD MAGNESIUM DECREASED [None]
  - GAIT DISTURBANCE [None]
  - ASTHENIA [None]
  - ARTHRALGIA [None]
